FAERS Safety Report 25384187 (Version 1)
Quarter: 2025Q2

REPORT INFORMATION
  Report Type: Spontaneous
  Country: US (occurrence: US)
  Receive Date: 20250602
  Receipt Date: 20250602
  Transmission Date: 20250716
  Serious: No
  Sender: CHIESI
  Company Number: US-CHIESI-2025CHF01109

PATIENT
  Age: 43 Year
  Sex: Female

DRUGS (2)
  1. ELFABRIO [Suspect]
     Active Substance: PEGUNIGALSIDASE ALFA-IWXJ
     Indication: Fabry^s disease
     Dosage: 76 MILLIGRAM, QOW
     Route: 042
     Dates: start: 20250210, end: 202502
  2. ELFABRIO [Suspect]
     Active Substance: PEGUNIGALSIDASE ALFA-IWXJ
     Dosage: 76 MILLIGRAM, QOW
     Route: 042
     Dates: start: 202502, end: 202502

REACTIONS (3)
  - Infusion related reaction [Recovering/Resolving]
  - Drug intolerance [Recovered/Resolved]
  - Incorrect dose administered [Recovering/Resolving]

NARRATIVE: CASE EVENT DATE: 20250201
